FAERS Safety Report 6287031-4 (Version None)
Quarter: 2009Q3

REPORT INFORMATION
  Report Type: 
  Country: None (occurrence: None)
  Receive Date: 20090727
  Receipt Date: 20090727
  Transmission Date: 20100115
  Serious: No
  Sender: FDA-Public Use
  Company Number: None

PATIENT
  Sex: Female
  Weight: 136.0791 kg

DRUGS (1)
  1. SYNTHROID [Suspect]
     Indication: THYROID DISORDER

REACTIONS (3)
  - HAND DEFORMITY [None]
  - MOVEMENT DISORDER [None]
  - MUSCLE SPASMS [None]
